FAERS Safety Report 5489147-9 (Version None)
Quarter: 2007Q4

REPORT INFORMATION
  Report Type: 
  Country: None (occurrence: None)
  Receive Date: 20071016
  Receipt Date: 20071001
  Transmission Date: 20080405
  Serious: Yes (Hospitalization)
  Sender: FDA-Public Use
  Company Number: 07-000603

PATIENT
  Age: 34 Year
  Sex: Female
  Weight: 52.2 kg

DRUGS (13)
  1. FEMRING [Suspect]
     Indication: VULVOVAGINAL DISCOMFORT
     Dosage: 0.1 MG, QD, VAGINAL; 0.1 MG, QD, VAGINAL
     Route: 067
     Dates: start: 20030101, end: 20061001
  2. FEMRING [Suspect]
     Indication: VULVOVAGINAL DRYNESS
     Dosage: 0.1 MG, QD, VAGINAL; 0.1 MG, QD, VAGINAL
     Route: 067
     Dates: start: 20030101, end: 20061001
  3. FEMRING [Suspect]
     Indication: VULVOVAGINAL DISCOMFORT
     Dosage: 0.1 MG, QD, VAGINAL; 0.1 MG, QD, VAGINAL
     Route: 067
     Dates: start: 20070301
  4. FEMRING [Suspect]
     Indication: VULVOVAGINAL DRYNESS
     Dosage: 0.1 MG, QD, VAGINAL; 0.1 MG, QD, VAGINAL
     Route: 067
     Dates: start: 20070301
  5. LIPITOR [Concomitant]
  6. CARDIZEM [Concomitant]
  7. PREMARIN [Concomitant]
  8. DEPO-ESTRADIOL /01394001/ (CHLOROBUTANOL, ESTRADIOL CIPIONATE, GOSSYPI [Concomitant]
  9. REMERON [Concomitant]
  10. ASPIRIN [Concomitant]
  11. PROTONIX /01263201/ (PANTOPRAZOLE) [Concomitant]
  12. ZETIA [Concomitant]
  13. BENICAR [Concomitant]

REACTIONS (21)
  - ANXIETY [None]
  - AUTONOMIC NERVOUS SYSTEM IMBALANCE [None]
  - CHEST PAIN [None]
  - DECREASED APPETITE [None]
  - DEPRESSION [None]
  - DISEASE RECURRENCE [None]
  - DIZZINESS [None]
  - DRUG INEFFECTIVE [None]
  - HORMONE LEVEL ABNORMAL [None]
  - HOT FLUSH [None]
  - INSOMNIA [None]
  - MEDICAL DEVICE COMPLICATION [None]
  - NIGHT SWEATS [None]
  - PALPITATIONS [None]
  - SUPRAVENTRICULAR TACHYCARDIA [None]
  - SYNCOPE [None]
  - URINARY TRACT INFECTION [None]
  - VAGINAL PAIN [None]
  - VAGINITIS BACTERIAL [None]
  - VULVOVAGINAL DRYNESS [None]
  - VULVOVAGINAL MYCOTIC INFECTION [None]
